FAERS Safety Report 9412145 (Version 2)
Quarter: 2013Q3

REPORT INFORMATION
  Report Type: Spontaneous
  Country: IT (occurrence: IT)
  Receive Date: 20130722
  Receipt Date: 20130916
  Transmission Date: 20140515
  Serious: Yes (Life-Threatening)
  Sender: FDA-Public Use
  Company Number: IT-NOVOPROD-383113

PATIENT
  Age: 46 Year
  Sex: Female

DRUGS (4)
  1. NOVOMIX 30 FLEXPEN [Suspect]
     Indication: DIABETES MELLITUS
     Dosage: 6 U, QD
     Route: 058
     Dates: start: 20050101
  2. LANTUS [Suspect]
     Indication: DIABETES MELLITUS
     Dosage: 20 U, UNK
     Route: 065
     Dates: start: 20050101
  3. APIDRA [Suspect]
     Indication: DIABETES MELLITUS
     Dosage: 4 POSOLOGICAL UNIT
     Route: 058
     Dates: start: 20050101
  4. EUTIROX [Concomitant]
     Indication: HYPOTHYROIDISM
     Dosage: UNKNOWN
     Route: 065

REACTIONS (3)
  - Road traffic accident [Recovered/Resolved]
  - Presyncope [Recovered/Resolved]
  - Hypoglycaemia [Recovered/Resolved]
